FAERS Safety Report 4733504-2 (Version None)
Quarter: 2005Q3

REPORT INFORMATION
  Report Type: 
  Country: None (occurrence: None)
  Receive Date: 20050725
  Receipt Date: 20041008
  Transmission Date: 20060218
  Serious: Yes (Death)
  Sender: FDA-Public Use
  Company Number: USA-2003-0011183

PATIENT
  Age: 18 Year
  Sex: Male
  Weight: 61.7 kg

DRUGS (6)
  1. MORPHINE SULFATE [Suspect]
  2. HYDROCODONE BITARTRATE [Suspect]
  3. VALIUM [Suspect]
  4. KETAMINE (KETAMINE) [Suspect]
  5. ROHYPNOL (FLUNITRAZEPAM) [Suspect]
  6. OXAZEPAM [Suspect]

REACTIONS (2)
  - ACCIDENTAL OVERDOSE [None]
  - MULTIPLE DRUG OVERDOSE [None]
